FAERS Safety Report 23675861 (Version 1)
Quarter: 2024Q1

REPORT INFORMATION
  Report Type: Spontaneous
  Country: HU (occurrence: HU)
  Receive Date: 20240327
  Receipt Date: 20240327
  Transmission Date: 20240410
  Serious: Yes (Hospitalization, Other)
  Sender: FDA-Public Use
  Company Number: HU-ASTELLAS-2024US008830

PATIENT
  Age: 51 Year
  Sex: Female

DRUGS (3)
  1. GILTERITINIB [Suspect]
     Active Substance: GILTERITINIB
     Indication: Acute myeloid leukaemia recurrent
     Dosage: UNK UNK, UNKNOWN FREQ. (WITHDRAWN FOR 14 DAYS)
     Route: 065
     Dates: start: 20220318
  2. GILTERITINIB [Suspect]
     Active Substance: GILTERITINIB
     Indication: FLT3 gene mutation
     Dosage: UNK UNK, UNKNOWN FREQ.
     Route: 065
     Dates: end: 20220603
  3. GILTERITINIB [Suspect]
     Active Substance: GILTERITINIB
     Dosage: UNK UNK, UNKNOWN FREQ. (TREATMENT WAS CONTINUED AFTER 5 DAYS)
     Route: 065

REACTIONS (8)
  - Febrile neutropenia [Unknown]
  - COVID-19 [Unknown]
  - Pancytopenia [Unknown]
  - Pneumonia [Unknown]
  - Differentiation syndrome [Unknown]
  - C-reactive protein increased [Recovering/Resolving]
  - Procalcitonin increased [Recovering/Resolving]
  - Acute febrile neutrophilic dermatosis [Unknown]

NARRATIVE: CASE EVENT DATE: 20220526
